FAERS Safety Report 11199967 (Version 1)
Quarter: 2015Q2

REPORT INFORMATION
  Report Type: Spontaneous
  Country: US (occurrence: US)
  Receive Date: 20150618
  Receipt Date: 20150618
  Transmission Date: 20150821
  Serious: Yes (Other)
  Sender: FDA-Public Use
  Company Number: US-INCYTE CORPORATION-2015IN001914

PATIENT
  Sex: Female

DRUGS (4)
  1. JAKAFI [Suspect]
     Active Substance: RUXOLITINIB
     Indication: POLYCYTHAEMIA VERA
     Dosage: 10 MG, BID
     Route: 048
     Dates: start: 201503
  2. BABY ASPIRIN [Concomitant]
     Active Substance: ASPIRIN
     Dosage: PRN
  3. HYDREA [Concomitant]
     Active Substance: HYDROXYUREA
     Dosage: EVERY OTHER DAY
  4. JAKAFI [Suspect]
     Active Substance: RUXOLITINIB
     Dosage: 15 MG, BID
     Route: 048

REACTIONS (4)
  - Bacterial infection [Recovered/Resolved]
  - Coagulopathy [Unknown]
  - Platelet count increased [Recovering/Resolving]
  - Blood count abnormal [Recovered/Resolved]

NARRATIVE: CASE EVENT DATE: 2015
